FAERS Safety Report 9467357 (Version 1)
Quarter: 2013Q3

REPORT INFORMATION
  Report Type: Spontaneous
  Country: IT (occurrence: IT)
  Receive Date: 20130821
  Receipt Date: 20130821
  Transmission Date: 20140515
  Serious: Yes (Other)
  Sender: FDA-Public Use
  Company Number: IT-BRISTOL-MYERS SQUIBB COMPANY-19169598

PATIENT
  Age: 44 Year
  Sex: Male

DRUGS (5)
  1. REYATAZ CAPS 300 MG [Suspect]
     Indication: ACUTE HIV INFECTION
     Route: 048
     Dates: start: 20130729, end: 20130802
  2. PARIET [Interacting]
     Indication: GASTROINTESTINAL DISORDER
     Dosage: 02AUG13
     Route: 048
     Dates: start: 20130429
  3. KIVEXA [Concomitant]
     Dosage: TAB,1DF: 300+600MG
  4. NORVIR [Concomitant]
  5. DELTACORTENE [Concomitant]

REACTIONS (2)
  - Tongue oedema [Recovered/Resolved]
  - Drug interaction [Unknown]
